FAERS Safety Report 12082268 (Version 1)
Quarter: 2016Q1

REPORT INFORMATION
  Report Type: Spontaneous
  Country: CA (occurrence: CA)
  Receive Date: 20160217
  Receipt Date: 20160217
  Transmission Date: 20160526
  Serious: Yes (Hospitalization, Other)
  Sender: FDA-Public Use
  Company Number: CA-ROCHE-1710733

PATIENT
  Age: 17 Year
  Sex: Female
  Weight: 141.1 kg

DRUGS (5)
  1. ADVAIR HFA [Concomitant]
     Active Substance: FLUTICASONE PROPIONATE\SALMETEROL XINAFOATE
  2. ATROVENT [Concomitant]
     Active Substance: IPRATROPIUM BROMIDE
  3. XOLAIR [Suspect]
     Active Substance: OMALIZUMAB
     Indication: ASTHMA
     Route: 058
     Dates: start: 20140410
  4. SALBUTAMOL [Concomitant]
     Active Substance: ALBUTEROL
  5. FLOVENT [Concomitant]
     Active Substance: FLUTICASONE PROPIONATE

REACTIONS (14)
  - Infection [Unknown]
  - Immunodeficiency [Unknown]
  - Wheezing [Unknown]
  - Migraine [Unknown]
  - Pneumonia [Unknown]
  - Middle insomnia [Unknown]
  - Pulmonary function test abnormal [Unknown]
  - Asthma [Unknown]
  - Influenza [Unknown]
  - Pulmonary oedema [Unknown]
  - Decreased appetite [Unknown]
  - Lung infection [Unknown]
  - Malaise [Unknown]
  - Lower respiratory tract infection [Unknown]

NARRATIVE: CASE EVENT DATE: 201409
